FAERS Safety Report 17981736 (Version 2)
Quarter: 2020Q4

REPORT INFORMATION
  Report Type: Other
  Country: IL (occurrence: IL)
  Receive Date: 20200706
  Receipt Date: 20201001
  Transmission Date: 20210113
  Serious: Yes (Other)
  Sender: FDA-Public Use
  Company Number: IL-ROCHE-2634748

PATIENT
  Age: 36 Year
  Sex: Male

DRUGS (2)
  1. BACLOSAL [Concomitant]
     Active Substance: BACLOFEN
  2. OCREVUS [Suspect]
     Active Substance: OCRELIZUMAB
     Indication: RELAPSING-REMITTING MULTIPLE SCLEROSIS
     Dosage: LAST TREATMENT WAS RECEIVED ON 19/SEP/2019 (FOURTH CYCLE)
     Route: 042
     Dates: start: 20180313

REACTIONS (2)
  - Gait disturbance [Not Recovered/Not Resolved]
  - Expanded disability status scale score increased [Not Recovered/Not Resolved]

NARRATIVE: CASE EVENT DATE: 20200630
